FAERS Safety Report 7413497-X (Version None)
Quarter: 2011Q2

REPORT INFORMATION
  Report Type: 
  Country: None (occurrence: None)
  Receive Date: 20110413
  Receipt Date: 20110408
  Transmission Date: 20111010
  Serious: Yes (Other)
  Sender: FDA-Public Use
  Company Number: PHHY2011CA23168

PATIENT
  Sex: Female
  Weight: 51 kg

DRUGS (9)
  1. CALCIUM [Concomitant]
  2. EXTAVIA [Suspect]
     Indication: RELAPSING-REMITTING MULTIPLE SCLEROSIS
     Dosage: 2 MIU, QOD
     Route: 058
     Dates: start: 20100316
  3. GABAPENTIN [Concomitant]
  4. PREDNISOLONE [Concomitant]
  5. EXTAVIA [Suspect]
     Dosage: 6 MIU, QOD
     Route: 058
     Dates: start: 20110330
  6. VITAMIN D [Concomitant]
  7. AMITRIPTYLINE [Concomitant]
  8. EXTAVIA [Suspect]
     Dosage: 8 MIU, QOD
     Route: 058
     Dates: start: 20100316
  9. ZOPICLONE [Concomitant]

REACTIONS (21)
  - MUSCLE TIGHTNESS [None]
  - INJECTION SITE SWELLING [None]
  - OCULAR HYPERAEMIA [None]
  - PYREXIA [None]
  - FEELING COLD [None]
  - COUGH [None]
  - CHEST DISCOMFORT [None]
  - PAIN IN EXTREMITY [None]
  - INJECTION SITE WARMTH [None]
  - HEAD DISCOMFORT [None]
  - DIZZINESS [None]
  - HYPERHIDROSIS [None]
  - NECK PAIN [None]
  - INJECTION SITE PAIN [None]
  - INJECTION SITE ERYTHEMA [None]
  - INFLUENZA LIKE ILLNESS [None]
  - CHILLS [None]
  - NASOPHARYNGITIS [None]
  - RHINORRHOEA [None]
  - PILOERECTION [None]
  - FATIGUE [None]
